FAERS Safety Report 7391642-2 (Version None)
Quarter: 2011Q2

REPORT INFORMATION
  Report Type: 
  Country: None (occurrence: None)
  Receive Date: 20110404
  Receipt Date: 20110328
  Transmission Date: 20111010
  Serious: Yes (Death, Hospitalization)
  Sender: FDA-Public Use
  Company Number: US-ABBOTT-10P-163-0685699-00

PATIENT
  Sex: Male
  Weight: 68.1 kg

DRUGS (7)
  1. WELCHOL [Concomitant]
     Indication: BLOOD CHOLESTEROL INCREASED
  2. MUCINEX [Concomitant]
     Indication: SINUS CONGESTION
  3. HUMIRA [Suspect]
     Indication: CROHN'S DISEASE
     Dates: start: 20100910, end: 20101107
  4. SYNTHROID [Concomitant]
     Indication: HYPOTHYROIDISM
  5. TRAZODONE HCL [Concomitant]
     Indication: INSOMNIA
  6. ACETAMINOPHEN [Concomitant]
     Indication: PAIN
  7. PENTASA [Concomitant]
     Indication: CROHN'S DISEASE

REACTIONS (19)
  - AUTOIMMUNE HEPATITIS [None]
  - ASTHENIA [None]
  - VISION BLURRED [None]
  - CHILLS [None]
  - AUTOIMMUNE PANCREATITIS [None]
  - THROMBOSIS [None]
  - PYREXIA [None]
  - TREMOR [None]
  - FEELING COLD [None]
  - WEIGHT DECREASED [None]
  - CELLULITIS [None]
  - WOUND SECRETION [None]
  - MALAISE [None]
  - FEELING HOT [None]
  - NAUSEA [None]
  - GENERALISED OEDEMA [None]
  - OEDEMA PERIPHERAL [None]
  - ERYTHEMA [None]
  - DIARRHOEA [None]
